FAERS Safety Report 5243575-5 (Version None)
Quarter: 2007Q1

REPORT INFORMATION
  Report Type: 
  Country: None (occurrence: None)
  Receive Date: 20070220
  Receipt Date: 20070220
  Transmission Date: 20070707
  Serious: Yes (Hospitalization)
  Sender: FDA-Public Use
  Company Number: None

PATIENT
  Age: 28 Year
  Sex: Male

DRUGS (1)
  1. RESCUE REMEDY BY BACH [Suspect]
     Indication: FEELING OF RELAXATION
     Dosage: 4 DROPS  ONE TIME  MOUTH   1 TIME ON FEB 14 07
     Route: 048

REACTIONS (3)
  - BRUXISM [None]
  - SWOLLEN TONGUE [None]
  - URTICARIA [None]
